FAERS Safety Report 5085883-7 (Version None)
Quarter: 2006Q3

REPORT INFORMATION
  Report Type: 
  Country: None (occurrence: None)
  Receive Date: 20060817
  Receipt Date: 20060802
  Transmission Date: 20061208
  Serious: Yes (Other)
  Sender: FDA-Public Use
  Company Number: SPVI-2006-00322

PATIENT
  Age: 32 Year
  Sex: Male
  Weight: 115.9 kg

DRUGS (2)
  1. ADDERALL 15 [Suspect]
     Indication: ATTENTION DEFICIT/HYPERACTIVITY DISORDER
     Dosage: 25 MG 4 TO 5 CUP DAILY
     Dates: start: 20041220
  2. TYLENOL  /00020001/ [Concomitant]

REACTIONS (10)
  - DEPRESSION [None]
  - DRUG ABUSER [None]
  - INCORRECT DOSE ADMINISTERED [None]
  - NEPHRITIS INTERSTITIAL [None]
  - OVERDOSE [None]
  - PRESCRIBED OVERDOSE [None]
  - RENAL FAILURE ACUTE [None]
  - RENAL TUBULAR NECROSIS [None]
  - RHABDOMYOLYSIS [None]
  - WEIGHT DECREASED [None]
